FAERS Safety Report 7468916-X (Version None)
Quarter: 2011Q2

REPORT INFORMATION
  Report Type: 
  Country: None (occurrence: None)
  Receive Date: 20110428
  Receipt Date: 20110413
  Transmission Date: 20111010
  Serious: Yes (Hospitalization)
  Sender: FDA-Public Use
  Company Number: 017439

PATIENT
  Sex: Female
  Weight: 66 kg

DRUGS (12)
  1. NDOMETHACIN /00003801/ [Concomitant]
  2. FAMOTIDINE [Concomitant]
  3. TEPRENONE [Concomitant]
  4. ZOLPIDEM TARTRATE [Concomitant]
  5. CIMZIA [Suspect]
     Indication: RHEUMATOID ARTHRITIS
     Dosage: SEE IMAGE
     Route: 058
     Dates: start: 20110325
  6. CIMZIA [Suspect]
     Indication: RHEUMATOID ARTHRITIS
     Dosage: SEE IMAGE
     Route: 058
     Dates: start: 20091228, end: 20100804
  7. CIMZIA [Suspect]
     Indication: RHEUMATOID ARTHRITIS
     Dosage: SEE IMAGE
     Route: 058
     Dates: start: 20101027, end: 20110216
  8. CIMZIA [Suspect]
     Indication: RHEUMATOID ARTHRITIS
     Dosage: SEE IMAGE
     Route: 058
     Dates: start: 20090607
  9. FOLIC ACID [Concomitant]
  10. PREDNISOLONE [Concomitant]
  11. OLMESARTAN MEDOXOMIL [Concomitant]
  12. VALPROATE SODIUM [Concomitant]

REACTIONS (13)
  - INTRACRANIAL ANEURYSM [None]
  - CAROTID ARTERY ANEURYSM [None]
  - VOMITING [None]
  - AORTIC ANEURYSM [None]
  - HYPERTENSION [None]
  - URINARY INCONTINENCE [None]
  - FAECAL INCONTINENCE [None]
  - SUBARACHNOID HAEMORRHAGE [None]
  - HAEMORRHAGE [None]
  - CONVULSION [None]
  - CEREBRAL HAEMATOMA [None]
  - ATTENTION DEFICIT/HYPERACTIVITY DISORDER [None]
  - RUPTURED CEREBRAL ANEURYSM [None]
